FAERS Safety Report 23100518 (Version 1)
Quarter: 2023Q4

REPORT INFORMATION
  Report Type: Spontaneous
  Country: US (occurrence: None)
  Receive Date: 20231020
  Receipt Date: 20231020
  Transmission Date: 20240109
  Serious: Yes (Hospitalization)
  Sender: FDA-Public Use
  Company Number: None

PATIENT
  Age: 64 Year
  Sex: Male

DRUGS (1)
  1. PHENYTOIN SODIUM, EXTENDED [Suspect]
     Active Substance: PHENYTOIN SODIUM, EXTENDED
     Dates: start: 20220818, end: 20230104

REACTIONS (4)
  - Toxicity to various agents [None]
  - Gait disturbance [None]
  - Fall [None]
  - Balance disorder [None]

NARRATIVE: CASE EVENT DATE: 20221228
